FAERS Safety Report 13074611 (Version 5)
Quarter: 2018Q3

REPORT INFORMATION
  Report Type: Spontaneous
  Country: DE (occurrence: DE)
  Receive Date: 20161230
  Receipt Date: 20180719
  Transmission Date: 20181010
  Serious: Yes (Hospitalization)
  Sender: FDA-Public Use
  Company Number: DE-UCBSA-2016049543

PATIENT
  Age: 29 Year
  Sex: Female

DRUGS (11)
  1. VIMPAT [Suspect]
     Active Substance: LACOSAMIDE
     Indication: PRODUCT USED FOR UNKNOWN INDICATION
     Dosage: 100?0?100 TWICE DAILY, 100 MG 2X/DAY (BID)
  2. KEPPRA [Suspect]
     Active Substance: LEVETIRACETAM
     Dosage: 250MG
  3. NOVALGIN (METAMIZOLE SODIUM) [Concomitant]
     Active Substance: METAMIZOLE SODIUM
     Indication: PAIN
  4. KEPPRA [Suspect]
     Active Substance: LEVETIRACETAM
     Indication: PRODUCT USED FOR UNKNOWN INDICATION
     Dosage: 1500?0?1500 TWICE DAILY, 2X/DAY (BID)
  5. KEPPRA [Suspect]
     Active Substance: LEVETIRACETAM
     Dosage: 1000?0?1000 TWICE DAILY, 2X/DAY (BID)
  6. RIOPAN [Concomitant]
     Indication: ABDOMINAL PAIN UPPER
     Dosage: UNK
  7. TAVOR (LORAZEPAM) [Suspect]
     Active Substance: LORAZEPAM
     Indication: PRODUCT USED FOR UNKNOWN INDICATION
     Dosage: 2 MG
  8. TAVOR (LORAZEPAM) [Suspect]
     Active Substance: LORAZEPAM
     Dosage: 2.5MG
  9. FYCOMPA [Concomitant]
     Active Substance: PERAMPANEL
     Indication: PRODUCT USED FOR UNKNOWN INDICATION
  10. KEPPRA [Suspect]
     Active Substance: LEVETIRACETAM
     Dosage: 500?0?500 TWICE DAILY, 2X/DAY (BID)
     Dates: end: 201612
  11. LEVETIRACETAM. [Suspect]
     Active Substance: LEVETIRACETAM
     Indication: PRODUCT USED FOR UNKNOWN INDICATION
     Dosage: UNK

REACTIONS (17)
  - Disturbance in attention [Unknown]
  - Headache [Unknown]
  - Loss of consciousness [Unknown]
  - Fatigue [Unknown]
  - Learning disorder [Unknown]
  - Decreased appetite [Unknown]
  - Gait disturbance [Unknown]
  - Tremor [Recovered/Resolved]
  - Weight decreased [Unknown]
  - Hospitalisation [Not Recovered/Not Resolved]
  - Gastritis [Unknown]
  - Memory impairment [Unknown]
  - Dizziness [Unknown]
  - Intentional product misuse [Unknown]
  - Disability [Unknown]
  - Drug intolerance [Unknown]
  - Muscle twitching [Recovered/Resolved]

NARRATIVE: CASE EVENT DATE: 2016
